FAERS Safety Report 13022223 (Version 1)
Quarter: 2016Q4

REPORT INFORMATION
  Report Type: Spontaneous
  Country: MX (occurrence: MX)
  Receive Date: 20161213
  Receipt Date: 20161213
  Transmission Date: 20170207
  Serious: Yes (Other)
  Sender: FDA-Public Use
  Company Number: MX-AMGEN-MEXSP2016174198

PATIENT
  Age: 65 Year
  Sex: Male

DRUGS (1)
  1. PROLIA [Suspect]
     Active Substance: DENOSUMAB
     Indication: OSTEOPOROSIS
     Dosage: UNK ONCE A YEAR
     Route: 065

REACTIONS (2)
  - Inappropriate schedule of drug administration [Unknown]
  - Parkinson^s disease [Unknown]
